FAERS Safety Report 12888530 (Version 3)
Quarter: 2016Q4

REPORT INFORMATION
  Report Type: Spontaneous
  Country: US (occurrence: US)
  Receive Date: 20161027
  Receipt Date: 20161114
  Transmission Date: 20170207
  Serious: No
  Sender: FDA-Public Use
  Company Number: US-PFIZER INC-2016496795

PATIENT
  Age: 70 Year
  Sex: Female

DRUGS (2)
  1. XELJANZ [Suspect]
     Active Substance: TOFACITINIB CITRATE
     Dosage: 5 MG, UNK
     Dates: start: 20131219
  2. XELJANZ [Suspect]
     Active Substance: TOFACITINIB CITRATE
     Dosage: 5 MG, UNK
     Dates: start: 201608, end: 20161031

REACTIONS (6)
  - Blood urine present [Not Recovered/Not Resolved]
  - Dysuria [Unknown]
  - Bladder pain [Not Recovered/Not Resolved]
  - Bladder disorder [Unknown]
  - Intentional product misuse [Unknown]
  - Abdominal pain [Unknown]
